FAERS Safety Report 15241859 (Version 1)
Quarter: 2018Q4

REPORT INFORMATION
  Report Type: Spontaneous
  Country: US (occurrence: US)
  Receive Date: 20180805
  Receipt Date: 20180805
  Transmission Date: 20190204
  Serious: Yes (Life-Threatening, Hospitalization)
  Sender: FDA-Public Use
  Company Number: US-BAXTER-2018BAX020668

PATIENT
  Age: 19 Year
  Sex: Male

DRUGS (2)
  1. LABETALOL HYDROCHLORIDE INJECTION, USP [Suspect]
     Active Substance: LABETALOL HYDROCHLORIDE
     Indication: RILEY-DAY SYNDROME
     Route: 042
  2. CLONIDINE. [Concomitant]
     Active Substance: CLONIDINE
     Indication: RILEY-DAY SYNDROME
     Route: 065

REACTIONS (1)
  - Drug ineffective [Unknown]
